FAERS Safety Report 11424543 (Version 1)
Quarter: 2015Q3

REPORT INFORMATION
  Report Type: Spontaneous
  Country: US (occurrence: US)
  Receive Date: 20150827
  Receipt Date: 20150827
  Transmission Date: 20151125
  Serious: Yes (Other)
  Sender: FDA-Public Use
  Company Number: US-TEVA-589337USA

PATIENT
  Sex: Female

DRUGS (1)
  1. COPAXONE [Suspect]
     Active Substance: GLATIRAMER ACETATE
     Dosage: FORM OF ADM NOT REPORTED
     Route: 065

REACTIONS (3)
  - Injection site necrosis [Unknown]
  - Injection site reaction [Unknown]
  - Injection site atrophy [Unknown]
